FAERS Safety Report 4540035-1 (Version None)
Quarter: 2005Q1

REPORT INFORMATION
  Report Type: 
  Country: None (occurrence: None)
  Receive Date: 20041223
  Receipt Date: 20041215
  Transmission Date: 20050727
  Serious: Yes (Hospitalization)
  Sender: FDA-Public Use
  Company Number: HQWYE457312NOV04

PATIENT
  Age: 56 Year
  Sex: Female
  Weight: 82.5 kg

DRUGS (21)
  1. RAPAMUNE [Suspect]
     Indication: PROPHYLAXIS AGAINST TRANSPLANT REJECTION
     Dosage: SEE IMAGE
     Route: 048
     Dates: start: 20040930, end: 20041101
  2. RAPAMUNE [Suspect]
     Indication: PROPHYLAXIS AGAINST TRANSPLANT REJECTION
     Dosage: SEE IMAGE
     Route: 048
     Dates: start: 20041101
  3. ANTITHYMOCYTE IMMUNOGLOBULIN (ANTITHYMOCYTE IMMUNOGLOBULIN) [Suspect]
     Indication: KIDNEY TRANSPLANT REJECTION
     Dates: start: 20040101
  4. TACROLIMUS (TACROLIMUS) [Suspect]
     Indication: PROPHYLAXIS AGAINST TRANSPLANT REJECTION
     Dosage: 5 MG 2 X PER 1 DAY, ORAL
     Route: 048
     Dates: start: 20040930, end: 20041101
  5. TACROLIMUS (TACROLIMUS) [Suspect]
     Dosage: 3 MG 2 X PER 1 DAY, ORAL
     Route: 048
     Dates: start: 20041101
  6. PREDNISONE [Concomitant]
  7. DIFLUCAN [Concomitant]
  8. SEPTRA [Concomitant]
  9. COLACE (DOCUSATE SODIUM) [Concomitant]
  10. NIFEREX (POLYSACCHARIDE-IRON COMPLEX) [Concomitant]
  11. ASPIRIN [Concomitant]
  12. VALCYTE [Concomitant]
  13. ZOCOR [Concomitant]
  14. NEXIUM [Concomitant]
  15. CELEXA [Concomitant]
  16. SYNTHROID [Concomitant]
  17. DITROPAN [Concomitant]
  18. FOLIC ACID [Concomitant]
  19. LASIC ACID (FOLIC ACID) [Concomitant]
  20. LASIX [Concomitant]
  21. NEURONTIN [Concomitant]

REACTIONS (4)
  - ANAEMIA [None]
  - COMPLICATIONS OF TRANSPLANTED KIDNEY [None]
  - KIDNEY TRANSPLANT REJECTION [None]
  - TREMOR [None]
